FAERS Safety Report 5622673-8 (Version None)
Quarter: 2008Q1

REPORT INFORMATION
  Report Type: 
  Country: None (occurrence: None)
  Receive Date: 20080205
  Receipt Date: 20080125
  Transmission Date: 20080703
  Serious: Yes (Other)
  Sender: FDA-Public Use
  Company Number: CHNY2008BR00696

PATIENT
  Age: 3 Year
  Sex: Male
  Weight: 13.6 kg

DRUGS (2)
  1. CLEMASTINE FUMARATE [Suspect]
     Indication: URTICARIA
     Dosage: 1 TSP, Q8H, ORAL
     Route: 048
     Dates: start: 20080124
  2. IRON POLYMALTOSE (FERRIC HYDROXIDE POLYMALTOSE COMPLEX) [Concomitant]

REACTIONS (3)
  - CONDITION AGGRAVATED [None]
  - MASS [None]
  - OEDEMA PERIPHERAL [None]
